FAERS Safety Report 9935527 (Version 1)
Quarter: 2014Q1

REPORT INFORMATION
  Report Type: Spontaneous
  Country: US (occurrence: US)
  Receive Date: 20140228
  Receipt Date: 20140228
  Transmission Date: 20141002
  Serious: No
  Sender: FDA-Public Use
  Company Number: US-PFIZER INC-2014059377

PATIENT
  Sex: Male

DRUGS (2)
  1. CHANTIX [Suspect]
     Indication: SMOKING CESSATION THERAPY
     Dosage: 1 MG, UNK
  2. CHANTIX [Suspect]
     Dosage: 0.5 MG, UNK

REACTIONS (3)
  - Headache [Unknown]
  - Impatience [Unknown]
  - Incorrect dose administered [Unknown]
